FAERS Safety Report 23943168 (Version 5)
Quarter: 2025Q1

REPORT INFORMATION
  Report Type: Spontaneous
  Country: US (occurrence: US)
  Receive Date: 20240605
  Receipt Date: 20250312
  Transmission Date: 20250408
  Serious: No
  Sender: BRISTOL-MYERS SQUIBB COMPANY
  Company Number: US-BRISTOL-MYERS SQUIBB COMPANY-2024-091015

PATIENT
  Age: 65 Year
  Sex: Female

DRUGS (1)
  1. ORENCIA [Suspect]
     Active Substance: ABATACEPT
     Indication: Product used for unknown indication
     Dosage: DOSE : 125MG ONCE A WEEK; FREQ : INJECT 125MG SUBCUTANEOUSLY ONCE A WEEK
     Route: 058

REACTIONS (5)
  - Alopecia [Unknown]
  - Iron deficiency [Unknown]
  - Peripheral swelling [Unknown]
  - Illness [Unknown]
  - Panic attack [Unknown]
